FAERS Safety Report 20422171 (Version 2)
Quarter: 2022Q1

REPORT INFORMATION
  Report Type: Report from Study
  Country: CZ (occurrence: CZ)
  Receive Date: 20220203
  Receipt Date: 20220211
  Transmission Date: 20220423
  Serious: Yes (Hospitalization)
  Sender: FDA-Public Use
  Company Number: CZ-JNJFOC-20220149689

PATIENT
  Age: 66 Year
  Sex: Male
  Weight: 97 kg

DRUGS (31)
  1. ESKETAMINE [Suspect]
     Active Substance: ESKETAMINE
     Indication: Major depression
     Dates: start: 20180205, end: 20220111
  2. ESKETAMINE [Suspect]
     Active Substance: ESKETAMINE
     Indication: Depression
  3. BISOPROLOL FUMARATE [Concomitant]
     Active Substance: BISOPROLOL FUMARATE
     Indication: Blood pressure increased
     Route: 048
  4. BISOPROLOL FUMARATE [Concomitant]
     Active Substance: BISOPROLOL FUMARATE
     Indication: Hypertension
     Route: 048
  5. RAMIPRIL [Concomitant]
     Active Substance: RAMIPRIL
     Indication: Blood pressure increased
     Route: 048
  6. CYMBALTA [Concomitant]
     Active Substance: DULOXETINE HYDROCHLORIDE
     Indication: Depression
     Route: 048
  7. ZOLPIDEM TARTRATE [Concomitant]
     Active Substance: ZOLPIDEM TARTRATE
     Indication: Depression
     Route: 048
  8. BROMAZEPAM [Concomitant]
     Active Substance: BROMAZEPAM
     Indication: Depression
     Route: 048
  9. BRINTELLIX [Concomitant]
     Active Substance: VORTIOXETINE HYDROBROMIDE
     Indication: Depression
     Route: 048
  10. BRINTELLIX [Concomitant]
     Active Substance: VORTIOXETINE HYDROBROMIDE
     Route: 048
  11. BRINTELLIX [Concomitant]
     Active Substance: VORTIOXETINE HYDROBROMIDE
     Route: 048
  12. BRINTELLIX [Concomitant]
     Active Substance: VORTIOXETINE HYDROBROMIDE
     Route: 048
  13. BRINTELLIX [Concomitant]
     Active Substance: VORTIOXETINE HYDROBROMIDE
     Route: 048
  14. PARALEN [PARACETAMOL] [Concomitant]
     Indication: Nasopharyngitis
     Dosage: 2 TABLETS
     Route: 048
     Dates: start: 20180307
  15. CHLORCHINALDIN [Concomitant]
     Indication: Nasopharyngitis
     Route: 048
  16. IBUPROFEN [Concomitant]
     Active Substance: IBUPROFEN
     Indication: Nasopharyngitis
     Route: 048
     Dates: start: 20180601
  17. IBUPROFEN [Concomitant]
     Active Substance: IBUPROFEN
     Indication: Oropharyngeal pain
     Route: 048
     Dates: start: 20180628
  18. CLARITHROMYCIN [Concomitant]
     Active Substance: CLARITHROMYCIN
     Indication: Nasopharyngitis
     Route: 048
     Dates: start: 20180601
  19. CLARITHROMYCIN [Concomitant]
     Active Substance: CLARITHROMYCIN
     Route: 048
  20. CLARITHROMYCIN [Concomitant]
     Active Substance: CLARITHROMYCIN
     Route: 048
  21. AZITHROMYCIN ANHYDROUS [Concomitant]
     Active Substance: AZITHROMYCIN ANHYDROUS
     Indication: Nasopharyngitis
     Route: 048
     Dates: start: 20181015
  22. AZITHROMYCIN ANHYDROUS [Concomitant]
     Active Substance: AZITHROMYCIN ANHYDROUS
     Route: 048
     Dates: start: 20201228
  23. TRAZODONE HYDROCHLORIDE [Concomitant]
     Active Substance: TRAZODONE HYDROCHLORIDE
     Indication: Depression
     Route: 048
  24. ACIDUM BORICUM [Concomitant]
     Indication: Hypoacusis
     Dosage: 1 DROP
     Route: 001
     Dates: start: 20190703
  25. LORATADINE [Concomitant]
     Active Substance: LORATADINE
     Indication: Hypoacusis
     Route: 048
     Dates: start: 20190703
  26. DIMETHINDENE [Concomitant]
     Active Substance: DIMETHINDENE
     Indication: Rash pruritic
     Dosage: 2
     Route: 061
     Dates: start: 20200424
  27. EUTHYROX [Concomitant]
     Active Substance: LEVOTHYROXINE SODIUM
     Indication: Hypothyroidism
     Route: 048
     Dates: start: 20210416
  28. EUTHYROX [Concomitant]
     Active Substance: LEVOTHYROXINE SODIUM
     Route: 048
  29. AMOXICILLIN\CLAVULANIC ACID [Concomitant]
     Active Substance: AMOXICILLIN\CLAVULANIC ACID
     Indication: Nasopharyngitis
     Route: 048
  30. INFLUVAC TETRA [Concomitant]
     Active Substance: INFLUENZA VIRUS VACCINE QUADRIVALENT TYPE A+B
     Indication: Influenza immunisation
     Route: 030
  31. FORTRANS [MACROGOL 4000] [Concomitant]
     Indication: Colonoscopy
     Dosage: BEFORE PLANNED HEMMORHOIDS OPERATION
     Route: 048
     Dates: start: 20220105

REACTIONS (1)
  - Haemorrhoids [Recovered/Resolved]

NARRATIVE: CASE EVENT DATE: 20210701
